FAERS Safety Report 16249117 (Version 1)
Quarter: 2019Q2

REPORT INFORMATION
  Report Type: Spontaneous
  Country: DE (occurrence: DE)
  Receive Date: 20190429
  Receipt Date: 20190429
  Transmission Date: 20190711
  Serious: Yes (Other)
  Sender: FDA-Public Use
  Company Number: DE-TEVA-2019-DE-1041992

PATIENT
  Age: 18 Year
  Sex: Female
  Weight: 52 kg

DRUGS (3)
  1. VIVINOX SLEEP STARK SCHLAFTABLETTEN [Suspect]
     Active Substance: DIPHENHYDRAMINE HYDROCHLORIDE
     Indication: SUICIDAL IDEATION
     Dosage: 850 MILLIGRAM DAILY;
     Route: 048
     Dates: start: 20150810, end: 20150810
  2. IBUPROFEN. [Suspect]
     Active Substance: IBUPROFEN
     Indication: SUICIDAL IDEATION
     Dosage: 8000 MILLIGRAM DAILY;
     Route: 048
  3. VIVIMED N (ACETAMINOPHEN) [Suspect]
     Active Substance: ACETAMINOPHEN
     Indication: SUICIDE ATTEMPT
     Dosage: 5000 MILLIGRAM DAILY; 10 TABLETS
     Route: 048

REACTIONS (3)
  - Intentional overdose [Unknown]
  - Tachycardia [Unknown]
  - Suicide attempt [Unknown]
